FAERS Safety Report 19028146 (Version 1)
Quarter: 2021Q1

REPORT INFORMATION
  Report Type: Spontaneous
  Country: US (occurrence: US)
  Receive Date: 20210318
  Receipt Date: 20210318
  Transmission Date: 20210420
  Serious: No
  Sender: FDA-Public Use
  Company Number: US-BAUSCH-BL-2021-005459

PATIENT

DRUGS (2)
  1. ARAZLO [Suspect]
     Active Substance: TAZAROTENE
     Indication: PRODUCT USED FOR UNKNOWN INDICATION
     Dosage: PATIENT HAD BEEN USING FOR THE PAST 5 MONTHS FROM THE DATE OF REPORT ON 10/FEB/2021
     Route: 065
     Dates: start: 202009
  2. FINACEA [Concomitant]
     Active Substance: AZELAIC ACID
     Indication: PRODUCT USED FOR UNKNOWN INDICATION
     Dosage: STARTED FOR YEARS

REACTIONS (2)
  - Skin exfoliation [Unknown]
  - Rosacea [Unknown]
